FAERS Safety Report 7549783-2 (Version None)
Quarter: 2011Q2

REPORT INFORMATION
  Report Type: 
  Country: None (occurrence: None)
  Receive Date: 20110615
  Receipt Date: 20080208
  Transmission Date: 20111010
  Serious: Yes (Hospitalization, Other)
  Sender: FDA-Public Use
  Company Number: PHHY2007CA01005

PATIENT
  Sex: Female

DRUGS (3)
  1. SANDOSTATIN LAR [Suspect]
     Indication: HEPATIC NEOPLASM MALIGNANT
     Dosage: 20 MG, QMO
     Route: 030
     Dates: start: 20070212
  2. FERROUS SULFATE TAB [Concomitant]
     Dates: start: 20070801
  3. PREVACID [Concomitant]
     Dates: start: 20061201

REACTIONS (7)
  - HAEMATOCHEZIA [None]
  - ASTHENIA [None]
  - INSOMNIA [None]
  - THERAPEUTIC RESPONSE UNEXPECTED [None]
  - GASTRIC VARICES [None]
  - NEOPLASM MALIGNANT [None]
  - NIGHT SWEATS [None]
